FAERS Safety Report 17283863 (Version 1)
Quarter: 2020Q1

REPORT INFORMATION
  Report Type: Spontaneous
  Country: US (occurrence: US)
  Receive Date: 20200117
  Receipt Date: 20200117
  Transmission Date: 20200409
  Serious: No
  Sender: FDA-Public Use
  Company Number: US-INCYTE CORPORATION-2020IN000331

PATIENT

DRUGS (2)
  1. JAKAFI [Suspect]
     Active Substance: RUXOLITINIB
     Dosage: 8.75 MILLIGRAM (ONE 5 MG TABLET + 3/4 OF 5 MG TABLET), BID
     Route: 048
  2. JAKAFI [Suspect]
     Active Substance: RUXOLITINIB
     Dosage: 7.5 MILLIGRAM, BID (ONE 5 MG TABLET + HALF OF 5 MG TABLET)
     Route: 048
     Dates: start: 2019

REACTIONS (3)
  - Incorrect dose administered [Unknown]
  - Intentional product use issue [Unknown]
  - Joint swelling [Unknown]
